FAERS Safety Report 8846207 (Version 1)
Quarter: 2012Q4

REPORT INFORMATION
  Report Type: 
  Country: US (occurrence: US)
  Receive Date: 20121017
  Receipt Date: 20121017
  Transmission Date: 20130627
  Serious: Yes (Other)
  Sender: FDA-Public Use
  Company Number: US-JNJFOC-20121006130

PATIENT
  Age: 2 Month
  Sex: Male
  Weight: 4.99 kg

DRUGS (2)
  1. DESITIN MAXIMUM STRENGTH ORIGINAL [Suspect]
     Indication: DERMATITIS DIAPER
     Dosage: dime size
     Route: 061
     Dates: start: 20121005, end: 20121005
  2. CETIRIZINE [Concomitant]
     Indication: SEASONAL ALLERGY
     Dosage: since 1 week
     Route: 065
     Dates: start: 2012

REACTIONS (4)
  - Application site vesicles [Recovering/Resolving]
  - Application site pain [Recovering/Resolving]
  - Application site erythema [Recovering/Resolving]
  - Product odour abnormal [Unknown]
